FAERS Safety Report 6672865-4 (Version None)
Quarter: 2010Q2

REPORT INFORMATION
  Report Type: 
  Country: None (occurrence: None)
  Receive Date: 20100408
  Receipt Date: 20100329
  Transmission Date: 20101027
  Serious: Yes (Hospitalization, Other)
  Sender: FDA-Public Use
  Company Number: PHHY2010US16982

PATIENT
  Sex: Male
  Weight: 106.3 kg

DRUGS (18)
  1. RECLAST [Suspect]
     Indication: OSTEOPOROSIS
     Dosage: 5 MG, ONCE/SINGLE
     Dates: start: 20100304, end: 20100304
  2. METHOTREXATE [Concomitant]
     Indication: RHEUMATOID ARTHRITIS
     Dosage: 20 MG, QW
     Route: 048
     Dates: start: 20060921
  3. ORENCIA [Concomitant]
     Indication: RHEUMATOID ARTHRITIS
     Dosage: 1000 MG, QW4
     Dates: start: 20090707
  4. PREDNISONE TAB [Concomitant]
     Indication: RHEUMATOID ARTHRITIS
     Dosage: 10 MG QD OR AS DIRECTED
     Route: 048
     Dates: start: 20060921
  5. PREDNISONE TAB [Concomitant]
     Dosage: 1 MG, QD
     Route: 048
  6. GABAPENTIN [Concomitant]
     Dosage: 300 MG, TID
     Route: 048
     Dates: start: 20090113
  7. ZOCOR [Concomitant]
     Dosage: 40 MG, QD
     Route: 048
  8. FLOMAX [Concomitant]
     Dosage: 0.4 MG, QD
     Route: 048
  9. ALLOPURINOL [Concomitant]
     Dosage: 100 MG, BID
     Route: 048
  10. FOLIC ACID [Concomitant]
     Dosage: 1 MG, QD
     Route: 048
  11. DARVOCET-N 100 [Concomitant]
     Indication: PAIN
     Dosage: 1 TAB Q4 HRS PRN
     Route: 048
  12. TOPROL-XL [Concomitant]
     Dosage: 50 MG, QD
     Route: 048
  13. PLAVIX [Concomitant]
     Dosage: 75 MG, QD
     Route: 048
  14. ASPIRIN [Concomitant]
     Dosage: 162 MG, QD
     Route: 048
  15. ASPIRIN [Concomitant]
     Dosage: 325 MG SINGLE/ONCE
  16. PREVACID [Concomitant]
     Dosage: 30 MG, BID
     Route: 048
  17. PLENDIL [Concomitant]
     Dosage: 5 MG, QD
     Route: 048
  18. ALDACTONE [Concomitant]
     Dosage: 50 MG, QD

REACTIONS (8)
  - ATRIAL FIBRILLATION [None]
  - ATRIOVENTRICULAR BLOCK FIRST DEGREE [None]
  - BLOOD PRESSURE INCREASED [None]
  - CHEST DISCOMFORT [None]
  - EMOTIONAL DISTRESS [None]
  - MUSCLE TIGHTNESS [None]
  - SINUS BRADYCARDIA [None]
  - WHEEZING [None]
